FAERS Safety Report 18911338 (Version 2)
Quarter: 2021Q1

REPORT INFORMATION
  Report Type: Spontaneous
  Country: US (occurrence: US)
  Receive Date: 20210218
  Receipt Date: 20210316
  Transmission Date: 20210420
  Serious: No
  Sender: FDA-Public Use
  Company Number: US-UNITED THERAPEUTICS-UNT-2021-002866

PATIENT
  Age: 65 Year
  Sex: Female
  Weight: 54.88 kg

DRUGS (4)
  1. BIATAIN [Suspect]
     Active Substance: POLYURETHANE
     Indication: INFECTION PROPHYLAXIS
     Dosage: UNK
     Route: 061
  2. REMODULIN [Suspect]
     Active Substance: TREPROSTINIL
     Indication: PULMONARY ARTERIAL HYPERTENSION
     Dosage: UNK UNK, CONTINUING
     Route: 041
     Dates: start: 20171110
  3. REMODULIN [Suspect]
     Active Substance: TREPROSTINIL
     Dosage: 0.028 ?G/KG, CONTINUING
     Route: 041
  4. LETAIRIS [Concomitant]
     Active Substance: AMBRISENTAN
     Indication: PRODUCT USED FOR UNKNOWN INDICATION
     Dosage: UNK
     Route: 065

REACTIONS (4)
  - Injection site bruising [Unknown]
  - Dermatitis contact [Unknown]
  - Injection site infection [Unknown]
  - Injection site pain [Unknown]

NARRATIVE: CASE EVENT DATE: 20210214
